FAERS Safety Report 5079350-4 (Version None)
Quarter: 2006Q3

REPORT INFORMATION
  Report Type: 
  Country: None (occurrence: None)
  Receive Date: 20060720
  Receipt Date: 20050713
  Transmission Date: 20061208
  Serious: Yes (Other)
  Sender: FDA-Public Use
  Company Number: 2005103207

PATIENT
  Age: 85 Year
  Sex: Female

DRUGS (3)
  1. CELEBREX [Suspect]
     Indication: ARTHRALGIA
     Dosage: 1 IN 1 D, ORAL
     Route: 048
     Dates: start: 20050101
  2. CELEBREX [Suspect]
     Indication: PAIN IN EXTREMITY
     Dosage: 1 IN 1 D, ORAL
     Route: 048
     Dates: start: 20050101
  3. VITAMINS (VITAMINS) [Concomitant]

REACTIONS (1)
  - PAIN [None]
